FAERS Safety Report 14675051 (Version 2)
Quarter: 2018Q2

REPORT INFORMATION
  Report Type: Spontaneous
  Country: ES (occurrence: ES)
  Receive Date: 20180323
  Receipt Date: 20180621
  Transmission Date: 20180711
  Serious: Yes (Other)
  Sender: FDA-Public Use
  Company Number: ES-TEVA-2018-ES-870803

PATIENT
  Age: 79 Year
  Sex: Male

DRUGS (9)
  1. FUROSEMIDA (1615A) [Concomitant]
     Active Substance: FUROSEMIDE
  2. AMIODARONA (392A) [Suspect]
     Active Substance: AMIODARONE
     Dosage: 200 MG EVERY 12 HOURS
     Route: 065
     Dates: start: 20171219, end: 20180112
  3. CEFAZOLINA (583A) [Concomitant]
  4. LINEZOLID. [Suspect]
     Active Substance: LINEZOLID
     Indication: ANTIBIOTIC PROPHYLAXIS
     Dosage: 600 MILLIGRAM DAILY;
     Route: 065
     Dates: start: 20171221, end: 20180125
  5. OMEPRAZOLE (2141A) [Suspect]
     Active Substance: OMEPRAZOLE SODIUM
     Indication: PROPHYLAXIS AGAINST GASTROINTESTINAL ULCER
     Dosage: 40 MILLIGRAM DAILY;
     Route: 042
     Dates: start: 20171221, end: 20180125
  6. METOCLOPRAMIDA (1958A) [Concomitant]
  7. TAZOBACTAM (2605A) [Suspect]
     Active Substance: TAZOBACTAM SODIUM
     Indication: ANTIBIOTIC PROPHYLAXIS
     Dosage: 2,25 GRAMS EVERY 6 HOURS
     Route: 065
     Dates: start: 20171221, end: 20180125
  8. DOMPERIDONA (865A) [Concomitant]
  9. VANCOMICINA (3197A) [Concomitant]
     Active Substance: VANCOMYCIN

REACTIONS (5)
  - Anaemia [Not Recovered/Not Resolved]
  - Platelet count decreased [Not Recovered/Not Resolved]
  - Leukopenia [Recovered/Resolved]
  - Spontaneous haematoma [Recovering/Resolving]
  - Hypertransaminasaemia [Recovered/Resolved]

NARRATIVE: CASE EVENT DATE: 20171224
